FAERS Safety Report 16896918 (Version 1)
Quarter: 2019Q4

REPORT INFORMATION
  Report Type: Spontaneous
  Country: US (occurrence: US)
  Receive Date: 20191009
  Receipt Date: 20191009
  Transmission Date: 20200122
  Serious: No
  Sender: FDA-Public Use
  Company Number: US-GLAXOSMITHKLINE-US2019AMR179483

PATIENT
  Age: 73 Year
  Sex: Male

DRUGS (1)
  1. NUCALA [Suspect]
     Active Substance: MEPOLIZUMAB
     Indication: PRODUCT USED FOR UNKNOWN INDICATION
     Dosage: 100 MG, (Q4W)UNK
     Route: 065
     Dates: start: 2019, end: 201909

REACTIONS (4)
  - Oedema [Unknown]
  - Rash [Unknown]
  - Pruritus [Unknown]
  - Type IV hypersensitivity reaction [Unknown]
